FAERS Safety Report 24654645 (Version 1)
Quarter: 2024Q4

REPORT INFORMATION
  Report Type: Spontaneous
  Country: US (occurrence: US)
  Receive Date: 20241122
  Receipt Date: 20241122
  Transmission Date: 20250114
  Serious: No
  Sender: ELI LILLY AND COMPANY
  Company Number: US-ELI_LILLY_AND_COMPANY-US202411013073

PATIENT
  Age: 82 Year
  Sex: Female

DRUGS (2)
  1. EBGLYSS [Suspect]
     Active Substance: LEBRIKIZUMAB-LBKZ
     Indication: Pruritus
     Dosage: UNK UNK, UNKNOWN (TWO INJECTION)
     Route: 065
     Dates: start: 20241112
  2. DUPIXENT [Concomitant]
     Active Substance: DUPILUMAB
     Indication: Pruritus
     Dosage: UNK UNK, UNKNOWN
     Route: 065

REACTIONS (6)
  - Nausea [Not Recovered/Not Resolved]
  - Eyelid margin crusting [Not Recovered/Not Resolved]
  - Dyspnoea [Not Recovered/Not Resolved]
  - Asthma [Not Recovered/Not Resolved]
  - Rash [Not Recovered/Not Resolved]
  - Rosacea [Not Recovered/Not Resolved]

NARRATIVE: CASE EVENT DATE: 20241115
